FAERS Safety Report 9406303 (Version 2)
Quarter: 2013Q3

REPORT INFORMATION
  Report Type: Spontaneous
  Country: AU (occurrence: AU)
  Receive Date: 20130717
  Receipt Date: 20130820
  Transmission Date: 20140515
  Serious: Yes (Hospitalization)
  Sender: FDA-Public Use
  Company Number: AU-MERCK-1307AUS008316

PATIENT
  Age: 2 Year
  Sex: Female

DRUGS (1)
  1. CLARATYNE [Suspect]
     Dosage: 5 TABS (10MG), UNK
     Route: 048
     Dates: start: 20070521

REACTIONS (2)
  - Accidental overdose [Unknown]
  - Accidental exposure to product by child [Unknown]
